FAERS Safety Report 7009476-7 (Version None)
Quarter: 2010Q3

REPORT INFORMATION
  Report Type: 
  Country: None (occurrence: None)
  Receive Date: 20100923
  Receipt Date: 20100913
  Transmission Date: 20110219
  Serious: Yes (Congenital Anomaly)
  Sender: FDA-Public Use
  Company Number: FR-SANOFI-AVENTIS-2010SA055055

PATIENT
  Age: 0 Day
  Sex: Male
  Weight: 2.19 kg

DRUGS (7)
  1. ZOLPIDEM TARTRATE [Suspect]
     Route: 064
  2. SPECIAFOLDINE [Suspect]
     Route: 064
     Dates: end: 20100101
  3. KARDEGIC [Suspect]
     Route: 064
     Dates: end: 20100210
  4. CORTANCYL [Suspect]
     Route: 064
     Dates: start: 20091209, end: 20100108
  5. PROGESTERONE [Suspect]
     Route: 064
     Dates: end: 20100101
  6. LEVOTHYROXINE SODIUM [Suspect]
     Route: 064
  7. CORTANCYL [Concomitant]
     Route: 064
     Dates: start: 20100108, end: 20100210

REACTIONS (3)
  - AORTIC DISORDER [None]
  - DRUG EXPOSURE DURING PREGNANCY [None]
  - VENTRICULAR SEPTAL DEFECT [None]
